FAERS Safety Report 5276591-8 (Version None)
Quarter: 2007Q1

REPORT INFORMATION
  Report Type: 
  Country: None (occurrence: None)
  Receive Date: 20070327
  Receipt Date: 20070319
  Transmission Date: 20070707
  Serious: Yes (Hospitalization)
  Sender: FDA-Public Use
  Company Number: FR-ELI_LILLY_AND_COMPANY-FR200703003901

PATIENT
  Age: 34 Year
  Sex: Female

DRUGS (3)
  1. ZYPREXA [Suspect]
     Indication: POSTPARTUM DEPRESSION
     Dosage: 5 MG, DAILY (1/D)
     Route: 048
     Dates: start: 20020101
  2. LEXOMIL [Concomitant]
     Indication: POSTPARTUM DEPRESSION
     Dosage: 6 MG, 2/D
     Route: 048
     Dates: start: 20020101
  3. IMOVANE [Concomitant]
     Indication: POSTPARTUM DEPRESSION
     Dosage: 1 D/F, DAILY (1/D)
     Route: 048
     Dates: start: 20020101

REACTIONS (3)
  - DRUG EXPOSURE DURING PREGNANCY [None]
  - PYELONEPHRITIS [None]
  - RENAL COLIC [None]
